FAERS Safety Report 5246985-5 (Version None)
Quarter: 2007Q1

REPORT INFORMATION
  Report Type: 
  Country: None (occurrence: None)
  Receive Date: 20070226
  Receipt Date: 20070220
  Transmission Date: 20070707
  Serious: Yes (Life-Threatening, Other)
  Sender: FDA-Public Use
  Company Number: BE-GLAXOSMITHKLINE-B0446496A

PATIENT
  Age: 28 Year
  Sex: Female
  Weight: 75 kg

DRUGS (4)
  1. CEFUROXIME [Suspect]
     Indication: BRONCHITIS
     Dosage: 500MG THREE TIMES PER DAY
     Route: 048
     Dates: start: 20061106, end: 20061106
  2. DEXTROMETHORPHAN HYDROBROMIDE [Concomitant]
  3. LYSOMUCIL [Concomitant]
     Route: 048
  4. SINUTAB [Concomitant]
     Route: 048

REACTIONS (13)
  - ANAPHYLACTIC REACTION [None]
  - DYSPHAGIA [None]
  - ERYTHEMA [None]
  - EYE SWELLING [None]
  - FEELING HOT [None]
  - HYPOTENSION [None]
  - LIP OEDEMA [None]
  - OEDEMA PERIPHERAL [None]
  - PHARYNGEAL OEDEMA [None]
  - PRURITUS [None]
  - RASH [None]
  - TREMOR [None]
  - URTICARIA GENERALISED [None]
